FAERS Safety Report 4672462-6 (Version None)
Quarter: 2005Q2

REPORT INFORMATION
  Report Type: 
  Country: None (occurrence: None)
  Receive Date: 20050524
  Receipt Date: 20050418
  Transmission Date: 20051028
  Serious: Yes (Other)
  Sender: FDA-Public Use
  Company Number: PHNU2005DE01679

PATIENT
  Age: 61 Year
  Sex: Female
  Weight: 68 kg

DRUGS (3)
  1. CO-DIOVAN [Suspect]
     Indication: HYPERTENSION
     Dosage: 1 DF/D
     Route: 048
     Dates: start: 20050401
  2. CO-DIOVAN [Suspect]
     Dosage: 1 DF, QD
     Route: 048
     Dates: start: 20050401
  3. SILICEA KIESELSAURE-BALSAM [Concomitant]

REACTIONS (5)
  - CONCOMITANT DISEASE AGGRAVATED [None]
  - HYPOACUSIS [None]
  - NASAL CONGESTION [None]
  - NASOPHARYNGITIS [None]
  - SNEEZING [None]
